FAERS Safety Report 5634647-1 (Version None)
Quarter: 2008Q1

REPORT INFORMATION
  Report Type: 
  Country: None (occurrence: None)
  Receive Date: 20080222
  Receipt Date: 20070330
  Transmission Date: 20080703
  Serious: Yes (Other)
  Sender: FDA-Public Use
  Company Number: IS-ASTRAZENECA-2007UW01404

PATIENT
  Age: 544 Month
  Sex: Male
  Weight: 95.5 kg

DRUGS (5)
  1. SEROQUEL [Suspect]
     Indication: MAJOR DEPRESSION
     Route: 048
     Dates: start: 20011204, end: 20040701
  2. SEROQUEL [Suspect]
     Indication: PSYCHOTIC DISORDER
     Route: 048
     Dates: start: 20011204, end: 20040701
  3. SEROQUEL [Suspect]
     Dosage: 300-400 MG
     Route: 048
     Dates: start: 20040713, end: 20060101
  4. SEROQUEL [Suspect]
     Dosage: 300-400 MG
     Route: 048
     Dates: start: 20040713, end: 20060101
  5. HEROIN [Suspect]

REACTIONS (10)
  - ASTHMA [None]
  - CHEMICAL BURNS OF EYE [None]
  - CHEST PAIN [None]
  - DIABETES MELLITUS [None]
  - HEADACHE [None]
  - OEDEMA PERIPHERAL [None]
  - OVERDOSE [None]
  - PNEUMONIA [None]
  - SKIN LACERATION [None]
  - TACHYCARDIA [None]
